FAERS Safety Report 8330210-2 (Version None)
Quarter: 2012Q2

REPORT INFORMATION
  Report Type: 
  Country: None (occurrence: None)
  Receive Date: 20120502
  Receipt Date: 20120501
  Transmission Date: 20120825
  Serious: Yes (Life-Threatening, Other)
  Sender: FDA-Public Use
  Company Number: CHPA2012US009630

PATIENT
  Age: 64 Year
  Sex: Female

DRUGS (4)
  1. POTASSIUM CHLORIDE [Concomitant]
  2. VOLTAREN [Suspect]
     Indication: ARTHRALGIA
     Dosage: UNK, UNK
     Route: 061
  3. PENNSAID [Suspect]
     Dosage: 4 DROPS PER KNEE
     Route: 061
  4. PENNSAID [Suspect]
     Indication: ARTHRALGIA
     Dosage: 40 DROPS IN EACH KNEE, UNK
     Route: 061

REACTIONS (19)
  - COUGH [None]
  - FATIGUE [None]
  - THERAPEUTIC RESPONSE UNEXPECTED [None]
  - DIARRHOEA HAEMORRHAGIC [None]
  - DIZZINESS [None]
  - DYSPHAGIA [None]
  - OROPHARYNGEAL PAIN [None]
  - DRY MOUTH [None]
  - THROAT TIGHTNESS [None]
  - MALAISE [None]
  - DRUG ADMINISTERED AT INAPPROPRIATE SITE [None]
  - DYSPNOEA [None]
  - HEART RATE ABNORMAL [None]
  - APHAGIA [None]
  - PAIN [None]
  - BLOOD PRESSURE ABNORMAL [None]
  - FOREIGN BODY [None]
  - CHRONIC LYMPHOCYTIC LEUKAEMIA [None]
  - OFF LABEL USE [None]
